FAERS Safety Report 10363047 (Version 1)
Quarter: 2014Q1

REPORT INFORMATION
  Report Type: Spontaneous
  Country: US (occurrence: None)
  Receive Date: 20140306
  Receipt Date: 20140306
  Transmission Date: 20141002
  Serious: Yes (Disabling, Other)
  Sender: FDA-Public Use
  Company Number: 163-21880-13054844

PATIENT
  Age: 62 Year
  Sex: Male

DRUGS (2)
  1. REVLIMID (LENALIDOMIDE) (10 MILLIGRAM, CAPSULES) [Suspect]
     Indication: PLASMA CELL MYELOMA
     Route: 048
     Dates: start: 20121226, end: 20130517
  2. VELCADE (BORTEZOMIB) [Concomitant]

REACTIONS (3)
  - Pancytopenia [None]
  - Plasma cell myeloma [None]
  - Drug ineffective [None]
